FAERS Safety Report 8159298-9 (Version None)
Quarter: 2012Q1

REPORT INFORMATION
  Report Type: 
  Country: None (occurrence: None)
  Receive Date: 20120223
  Receipt Date: 20120215
  Transmission Date: 20120608
  Serious: Yes (Other)
  Sender: FDA-Public Use
  Company Number: FI-PFIZER INC-2012040360

PATIENT
  Sex: Female

DRUGS (2)
  1. DESOGESTREL AND ETHINYL ESTRADIOL [Interacting]
     Indication: CONTRACEPTION
     Dosage: UNK
     Dates: start: 20110101
  2. SULFASALAZINE [Suspect]
     Dosage: UNK
     Dates: start: 20110901

REACTIONS (9)
  - DRUG INTERACTION [None]
  - PAIN [None]
  - DRUG INEFFECTIVE [None]
  - MUSCULOSKELETAL PAIN [None]
  - PREGNANCY ON ORAL CONTRACEPTIVE [None]
  - HEPATIC ENZYME INCREASED [None]
  - UNINTENDED PREGNANCY [None]
  - HAEMOGLOBIN DECREASED [None]
  - MATERNAL EXPOSURE DURING PREGNANCY [None]
